FAERS Safety Report 13046192 (Version 3)
Quarter: 2017Q1

REPORT INFORMATION
  Report Type: Spontaneous
  Country: US (occurrence: US)
  Receive Date: 20161220
  Receipt Date: 20170324
  Transmission Date: 20170428
  Serious: No
  Sender: FDA-Public Use
  Company Number: US-PFIZER INC-2016574909

PATIENT
  Age: 74 Year
  Sex: Male

DRUGS (1)
  1. SUTENT [Suspect]
     Active Substance: SUNITINIB MALATE
     Dosage: 50 MG, CYCLIC (DAILY FOR 14 DAYS THEN 7 DAYS OFF)
     Route: 048
     Dates: start: 20160915

REACTIONS (3)
  - Eye swelling [Unknown]
  - Eyelid ptosis [Unknown]
  - Blood pressure increased [Unknown]
